FAERS Safety Report 19984706 (Version 1)
Quarter: 2021Q4

REPORT INFORMATION
  Report Type: Spontaneous
  Country: IT (occurrence: IT)
  Receive Date: 20211021
  Receipt Date: 20211021
  Transmission Date: 20220303
  Serious: Yes (Other)
  Sender: FDA-Public Use
  Company Number: IT-TEVA-2021-IT-1966582

PATIENT
  Age: 28 Year
  Sex: Female

DRUGS (7)
  1. OLANZAPINE [Suspect]
     Active Substance: OLANZAPINE
     Indication: Major depression
     Dosage: 2.5 MILLIGRAM DAILY; AT BEDTIME
     Route: 065
  2. OLANZAPINE [Suspect]
     Active Substance: OLANZAPINE
     Indication: Psychotic disorder
  3. ZOLPIDEM [Suspect]
     Active Substance: ZOLPIDEM TARTRATE
     Indication: Insomnia
     Dosage: 10 MILLIGRAM DAILY;
     Route: 048
  4. ZOLPIDEM [Suspect]
     Active Substance: ZOLPIDEM TARTRATE
     Indication: Drug abuse
     Dosage: UP TO 80 MG/DAY
     Route: 048
  5. ZOLPIDEM [Suspect]
     Active Substance: ZOLPIDEM TARTRATE
     Indication: Intentional product misuse
  6. SERTRALINE [Concomitant]
     Active Substance: SERTRALINE HYDROCHLORIDE
     Indication: Major depression
     Dosage: 50-100 MG/DAY
     Route: 065
  7. SERTRALINE [Concomitant]
     Active Substance: SERTRALINE HYDROCHLORIDE
     Indication: Psychotic disorder
     Dosage: 150 MILLIGRAM DAILY;
     Route: 065

REACTIONS (8)
  - Hypersomnia [Unknown]
  - Headache [Unknown]
  - Somnolence [Unknown]
  - Dissociative disorder [Unknown]
  - Hallucination, auditory [Unknown]
  - Amnesia [Unknown]
  - Intentional product misuse [Unknown]
  - Drug abuse [Unknown]
